FAERS Safety Report 10249784 (Version 1)
Quarter: 2014Q2

REPORT INFORMATION
  Report Type: Report from Study
  Country: CA (occurrence: CA)
  Receive Date: 20140620
  Receipt Date: 20140620
  Transmission Date: 20141212
  Serious: Yes (Other)
  Sender: FDA-Public Use
  Company Number: PHHY2014CA076447

PATIENT
  Age: 46 Year
  Sex: Male

DRUGS (2)
  1. GILENYA [Suspect]
     Indication: RELAPSING-REMITTING MULTIPLE SCLEROSIS
     Dosage: 0.5 MG, QD
     Route: 048
     Dates: start: 20131217, end: 20140501
  2. CORTISONE [Suspect]
     Indication: MULTIPLE SCLEROSIS RELAPSE
     Route: 042

REACTIONS (6)
  - Optic neuritis [Unknown]
  - Lacrimation increased [Unknown]
  - Eye pruritus [Unknown]
  - Foreign body sensation in eyes [Unknown]
  - Multiple sclerosis relapse [Unknown]
  - Visual impairment [Unknown]
